FAERS Safety Report 7823005-7 (Version None)
Quarter: 2011Q4

REPORT INFORMATION
  Report Type: 
  Country: None (occurrence: None)
  Receive Date: 20111018
  Receipt Date: 20100814
  Transmission Date: 20120403
  Serious: No
  Sender: FDA-Public Use
  Company Number: US-ASTRAZENECA-2010SE38247

PATIENT
  Age: 3917 Day
  Sex: Male
  Weight: 37.2 kg

DRUGS (5)
  1. NASONEX [Concomitant]
     Indication: ASTHMA
  2. SINGULAIR [Concomitant]
     Indication: ASTHMA
  3. SYMBICORT [Suspect]
     Indication: ASTHMA
     Dosage: 160/4.5 UG 2 PUFFS BID
     Route: 055
     Dates: start: 20100430, end: 20100813
  4. XOPENEX HFA [Concomitant]
     Indication: ASTHMA
  5. PATANASE [Concomitant]
     Indication: ASTHMA

REACTIONS (1)
  - COELIAC DISEASE [None]
